FAERS Safety Report 10041477 (Version 1)
Quarter: 2014Q1

REPORT INFORMATION
  Report Type: Report from Study
  Country: TR (occurrence: TR)
  Receive Date: 20140327
  Receipt Date: 20140327
  Transmission Date: 20141002
  Serious: Yes (Other)
  Sender: FDA-Public Use
  Company Number: TR-US-EMD SERONO, INC.-7277304

PATIENT
  Sex: Female
  Weight: 79 kg

DRUGS (5)
  1. REBIF [Suspect]
     Indication: MULTIPLE SCLEROSIS
  2. IMOVANE [Suspect]
     Indication: SLEEP DISORDER
  3. CITOLOPRAM 15MG [Suspect]
     Indication: ANTIDEPRESSANT THERAPY
  4. AVAMIGRAN [Suspect]
     Indication: ANALGESIC THERAPY
  5. VOLTAREN /00372301/ [Suspect]
     Indication: ANALGESIC THERAPY

REACTIONS (1)
  - Hypertension [Recovering/Resolving]
